FAERS Safety Report 5872066-3 (Version None)
Quarter: 2008Q3

REPORT INFORMATION
  Report Type: 
  Country: None (occurrence: None)
  Receive Date: 20080905
  Receipt Date: 20080829
  Transmission Date: 20090109
  Serious: Yes (Disabling, Other)
  Sender: FDA-Public Use
  Company Number: GB-TEVA-176721ISR

PATIENT
  Age: 54 Year
  Sex: Male
  Weight: 85.91 kg

DRUGS (1)
  1. TRIMETHOPRIM [Suspect]
     Indication: URINARY TRACT INFECTION
     Route: 048
     Dates: start: 20080811, end: 20080815

REACTIONS (1)
  - IRIDOCYCLITIS [None]
